FAERS Safety Report 18418595 (Version 1)
Quarter: 2020Q4

REPORT INFORMATION
  Report Type: Report from Study
  Country: FR (occurrence: FR)
  Receive Date: 20201023
  Receipt Date: 20201023
  Transmission Date: 20210114
  Serious: Yes (Death, Life-Threatening, Hospitalization, Other)
  Sender: FDA-Public Use
  Company Number: FR-ACCORD-205782

PATIENT
  Age: 78 Year
  Sex: Male
  Weight: 70 kg

DRUGS (17)
  1. SOLU-MEDROL [Concomitant]
     Active Substance: METHYLPREDNISOLONE SODIUM SUCCINATE
     Dosage: UNK
     Dates: start: 20200201
  2. AMIKLIN [Concomitant]
     Active Substance: AMIKACIN SULFATE
     Indication: PROPHYLAXIS
     Dosage: UNK
     Route: 065
     Dates: start: 20200313
  3. MYCAMINE [Concomitant]
     Active Substance: MICAFUNGIN SODIUM
     Indication: PROPHYLAXIS
     Dosage: UNK
     Route: 065
     Dates: start: 20200313
  4. MESTINON [Concomitant]
     Active Substance: PYRIDOSTIGMINE BROMIDE
     Indication: NECROTISING MYOSITIS
     Dosage: UNK
     Route: 065
     Dates: start: 20200301
  5. TAZOCILLINE [Concomitant]
     Active Substance: PIPERACILLIN SODIUM\TAZOBACTAM SODIUM
     Indication: PROPHYLAXIS
     Dosage: UNK
     Route: 065
     Dates: start: 20200313
  6. SULFAMETHOXAZOLE/TRIMETHOPRIM [Concomitant]
     Active Substance: SULFAMETHOXAZOLE\TRIMETHOPRIM
     Indication: PRODUCT USED FOR UNKNOWN INDICATION
     Dosage: UNK
     Route: 065
     Dates: start: 20200224, end: 20200224
  7. FOLIC ACID. [Concomitant]
     Active Substance: FOLIC ACID
     Dosage: UNK
     Dates: start: 20191113
  8. CELLCEPT [Concomitant]
     Active Substance: MYCOPHENOLATE MOFETIL\MYCOPHENOLATE MOFETIL HYDROCHLORIDE
     Indication: NECROTISING MYOSITIS
     Dosage: UNK
     Route: 065
     Dates: start: 20200309
  9. PEMETREXED. [Suspect]
     Active Substance: PEMETREXED
     Indication: NON-SMALL CELL LUNG CANCER
     Route: 042
     Dates: start: 20191120, end: 20200122
  10. PEMBROLIZUMAB. [Suspect]
     Active Substance: PEMBROLIZUMAB
     Indication: NON-SMALL CELL LUNG CANCER
     Dosage: 200 MILLIGRAM, Q3W
     Route: 042
     Dates: start: 20191120, end: 20200122
  11. SODIUM CHLORIDE. [Concomitant]
     Active Substance: SODIUM CHLORIDE
     Indication: DRY EYE
     Dosage: UNK
     Route: 065
     Dates: start: 20200117
  12. SOLU-MEDROL [Concomitant]
     Active Substance: METHYLPREDNISOLONE SODIUM SUCCINATE
     Indication: NECROTISING MYOSITIS
     Dosage: UNK
     Route: 065
     Dates: start: 20200201
  13. CARBOPLATIN. [Suspect]
     Active Substance: CARBOPLATIN
     Indication: NON-SMALL CELL LUNG CANCER
     Dosage: 440 MILLIGRAM, Q3W
     Route: 042
     Dates: start: 20191120, end: 20200122
  14. SULFAMETHOXAZOLE/TRIMETHOPRIM [Concomitant]
     Active Substance: SULFAMETHOXAZOLE\TRIMETHOPRIM
     Indication: INFECTION PROPHYLAXIS
     Dosage: UNK
     Route: 065
     Dates: start: 20200224, end: 20200228
  15. PROSTIGMIN [Concomitant]
     Active Substance: NEOSTIGMINE BROMIDE
     Indication: NECROTISING MYOSITIS
     Dosage: UNK
     Route: 065
     Dates: start: 20200201, end: 20200301
  16. ZYVOXID [Concomitant]
     Active Substance: LINEZOLID
     Indication: PROPHYLAXIS
     Dosage: UNK
     Route: 065
     Dates: start: 20200313
  17. CYANOCOBALAMIN. [Concomitant]
     Active Substance: CYANOCOBALAMIN
     Dosage: UNK
     Dates: start: 20191113

REACTIONS (6)
  - Respiratory distress [Fatal]
  - Necrotising myositis [Fatal]
  - Lung disorder [Fatal]
  - Serratia infection [Fatal]
  - Alpha haemolytic streptococcal infection [Fatal]
  - Shock [Fatal]

NARRATIVE: CASE EVENT DATE: 20200207
